FAERS Safety Report 19473171 (Version 4)
Quarter: 2022Q2

REPORT INFORMATION
  Report Type: Report from Study
  Country: US (occurrence: US)
  Receive Date: 20210629
  Receipt Date: 20220625
  Transmission Date: 20220721
  Serious: Yes (Hospitalization, Other)
  Sender: FDA-Public Use
  Company Number: US-TAKEDA-2021TUS038820

PATIENT
  Age: 41 Year
  Sex: Male

DRUGS (8)
  1. TEDUGLUTIDE [Suspect]
     Active Substance: TEDUGLUTIDE
     Indication: Short-bowel syndrome
     Dosage: 3.85 MILLIGRAM (0.05 MG/KG DAILY DOSE), QD
     Route: 042
     Dates: start: 201602, end: 201608
  2. TEDUGLUTIDE [Suspect]
     Active Substance: TEDUGLUTIDE
     Indication: Short-bowel syndrome
     Dosage: 3.85 MILLIGRAM (0.05 MG/KG DAILY DOSE), QD
     Route: 042
     Dates: start: 201602, end: 201608
  3. TEDUGLUTIDE [Suspect]
     Active Substance: TEDUGLUTIDE
     Indication: Short-bowel syndrome
     Dosage: 3.85 MILLIGRAM (0.05 MG/KG DAILY DOSE), QD
     Route: 042
     Dates: start: 201602, end: 201608
  4. TEDUGLUTIDE [Suspect]
     Active Substance: TEDUGLUTIDE
     Indication: Short-bowel syndrome
     Dosage: 3.85 MILLIGRAM (0.05 MG/KG DAILY DOSE), QD
     Route: 042
     Dates: start: 201602, end: 201608
  5. REQUIP [Concomitant]
     Active Substance: ROPINIROLE HYDROCHLORIDE
     Indication: Iron deficiency anaemia
     Dosage: 2 MILLIGRAM, QD
     Route: 048
     Dates: start: 20170504, end: 20180222
  6. REQUIP [Concomitant]
     Active Substance: ROPINIROLE HYDROCHLORIDE
     Dosage: 1 MILLIGRAM, TID
     Route: 048
     Dates: start: 20170720, end: 20180222
  7. DELTASONE [Concomitant]
     Active Substance: PREDNISONE
     Indication: Bronchitis chronic
     Dosage: 5 MILLIGRAM, BID
     Route: 048
     Dates: start: 20170926, end: 20180222
  8. KAY CIEL [Concomitant]
     Active Substance: POTASSIUM CHLORIDE
     Indication: Electrolyte imbalance
     Dosage: 10 MILLILITER
     Route: 048
     Dates: start: 20170504, end: 20180222

REACTIONS (3)
  - Enterostomy closure [Recovered/Resolved]
  - Fistula [Recovered/Resolved]
  - Crohn^s disease [Recovered/Resolved]

NARRATIVE: CASE EVENT DATE: 20190319
